FAERS Safety Report 18447251 (Version 7)
Quarter: 2024Q4

REPORT INFORMATION
  Report Type: Report from Study
  Country: AR (occurrence: AR)
  Receive Date: 20201030
  Receipt Date: 20241219
  Transmission Date: 20250115
  Serious: Yes (Hospitalization)
  Sender: NOVARTIS
  Company Number: PHHY2018AR102110

PATIENT
  Age: 7 Year
  Sex: Female

DRUGS (10)
  1. ILARIS [Suspect]
     Active Substance: CANAKINUMAB
     Indication: Still^s disease
     Dosage: UNK
     Route: 065
     Dates: start: 2015
  2. ILARIS [Suspect]
     Active Substance: CANAKINUMAB
     Indication: Growth hormone deficiency
     Dosage: 150 MG (VIAL/AMPOULE)
     Route: 065
     Dates: start: 20170210
  3. ILARIS [Suspect]
     Active Substance: CANAKINUMAB
     Dosage: 150 MG, QMO
     Route: 058
     Dates: start: 20171002
  4. ILARIS [Suspect]
     Active Substance: CANAKINUMAB
     Dosage: 60 MG, QMO
     Route: 065
  5. ILARIS [Suspect]
     Active Substance: CANAKINUMAB
     Dosage: UNK UNK, QMO
     Route: 065
     Dates: end: 201805
  6. ILARIS [Suspect]
     Active Substance: CANAKINUMAB
     Dosage: 80 MG, QMO
     Route: 058
  7. ILARIS [Suspect]
     Active Substance: CANAKINUMAB
     Dosage: 90 MG/KG, QMO
     Route: 058
  8. ILARIS [Suspect]
     Active Substance: CANAKINUMAB
     Dosage: 80 ML, QMO
     Route: 065
     Dates: start: 201805, end: 2018
  9. ILARIS [Suspect]
     Active Substance: CANAKINUMAB
     Dosage: 80 ML, QID
     Route: 065
     Dates: start: 201807
  10. ILARIS [Suspect]
     Active Substance: CANAKINUMAB
     Dosage: UNK
     Route: 065
     Dates: start: 20241206

REACTIONS (13)
  - Still^s disease [Unknown]
  - Condition aggravated [Unknown]
  - Anxiety [Recovering/Resolving]
  - Hepatitis [Recovering/Resolving]
  - Inflammation [Recovering/Resolving]
  - Cardiac disorder [Recovering/Resolving]
  - Decreased immune responsiveness [Unknown]
  - COVID-19 [Recovered/Resolved]
  - Pain in extremity [Unknown]
  - Product use in unapproved indication [Unknown]
  - Product use issue [Unknown]
  - Furuncle [Recovering/Resolving]
  - Swelling [Recovering/Resolving]

NARRATIVE: CASE EVENT DATE: 20180502
